FAERS Safety Report 4345447-7 (Version None)
Quarter: 2004Q2

REPORT INFORMATION
  Report Type: 
  Country: None (occurrence: None)
  Receive Date: 20040421
  Receipt Date: 20040413
  Transmission Date: 20050107
  Serious: Yes (Hospitalization, Other)
  Sender: FDA-Public Use
  Company Number: HQWYE446313APR04

PATIENT
  Age: 71 Year
  Sex: Male

DRUGS (10)
  1. IBUPROFEN AND PSEUDOEPHEDRINE HCL [Suspect]
     Indication: BRONCHOPNEUMONIA
     Dosage: ORAL
     Route: 048
     Dates: start: 20040220, end: 20040224
  2. CLARITHROMYCIN [Concomitant]
  3. OMIX (TAMSULOSIN HYDROCHLORIDE) [Concomitant]
  4. DEPAMIDE (VALPROMIDE) [Concomitant]
  5. SOLIAN (AMISULPRIDE) [Concomitant]
  6. THEARALENE (ALIMEMAZINE TARTRATE) [Concomitant]
  7. PRAXILENE (NAFTIDROFURYL OXALATE) [Concomitant]
  8. DOTHIEPIN HYDROCHLORIDE [Concomitant]
  9. GLUCOR (ACARBOSE) [Concomitant]
  10. UMULINE (INSULIN HUMAN ZINC SUSPENSION) [Concomitant]

REACTIONS (5)
  - GENERALISED ERYTHEMA [None]
  - HYPERSENSITIVITY [None]
  - IDIOPATHIC CAPILLARITIS [None]
  - PURPURA [None]
  - SKIN TEST POSITIVE [None]
